FAERS Safety Report 5357482-0 (Version None)
Quarter: 2007Q2

REPORT INFORMATION
  Report Type: 
  Country: None (occurrence: None)
  Receive Date: 20070530
  Receipt Date: 20061025
  Transmission Date: 20071010
  Serious: Yes (Hospitalization, Other)
  Sender: FDA-Public Use
  Company Number: US_0506119082

PATIENT
  Age: 43 Year
  Sex: Male
  Weight: 83 kg

DRUGS (1)
  1. ZYPREXA [Suspect]
     Dosage: 75 MG
     Dates: start: 19990101, end: 20010101

REACTIONS (4)
  - DIABETES MELLITUS NON-INSULIN-DEPENDENT [None]
  - HEPATITIS [None]
  - PANCREATITIS [None]
  - PRESCRIBED OVERDOSE [None]
